FAERS Safety Report 7993010-9 (Version None)
Quarter: 2011Q4

REPORT INFORMATION
  Report Type: 
  Country: None (occurrence: None)
  Receive Date: 20111219
  Receipt Date: 20110620
  Transmission Date: 20120403
  Serious: No
  Sender: FDA-Public Use
  Company Number: US-ASTRAZENECA-2011SE37319

PATIENT
  Age: 85 Year
  Sex: Male
  Weight: 79.4 kg

DRUGS (1)
  1. CRESTOR [Suspect]
     Route: 048
     Dates: start: 20101004, end: 20110526

REACTIONS (3)
  - MYALGIA [None]
  - MUSCULAR WEAKNESS [None]
  - LOW DENSITY LIPOPROTEIN INCREASED [None]
